FAERS Safety Report 22024682 (Version 1)
Quarter: 2023Q1

REPORT INFORMATION
  Report Type: Spontaneous
  Country: US (occurrence: None)
  Receive Date: 20230223
  Receipt Date: 20230223
  Transmission Date: 20230417
  Serious: No
  Sender: FDA-Public Use
  Company Number: US-ROCHE-3035108

PATIENT
  Age: 78 Year
  Sex: Female
  Weight: 39.044 kg

DRUGS (5)
  1. XOLAIR [Suspect]
     Active Substance: OMALIZUMAB
     Indication: Urticaria
     Dosage: (2) 150 MG SHOTS IN EACH ARM EVERY TWO WEEKS.
     Route: 058
     Dates: start: 20220116, end: 20220216
  2. XOLAIR [Suspect]
     Active Substance: OMALIZUMAB
     Indication: Hypersensitivity
     Dosage: 2ND DOSAGE OF 2 INJECTIONS
     Route: 065
     Dates: start: 20220216
  3. XOLAIR [Suspect]
     Active Substance: OMALIZUMAB
     Indication: Product used for unknown indication
  4. PEPCID [Concomitant]
     Active Substance: FAMOTIDINE
     Indication: Urticaria
     Dosage: (2) 20 MG TABLETS DAILY
     Route: 048
     Dates: start: 202109
  5. BENADRYL [Concomitant]
     Active Substance: DIPHENHYDRAMINE HYDROCHLORIDE
     Indication: Urticaria
     Route: 048
     Dates: start: 202109

REACTIONS (4)
  - Urticaria [Not Recovered/Not Resolved]
  - Herpes zoster [Not Recovered/Not Resolved]
  - Hair colour changes [Not Recovered/Not Resolved]
  - Pruritus [Unknown]

NARRATIVE: CASE EVENT DATE: 20220116
